FAERS Safety Report 7802656-X (Version None)
Quarter: 2011Q4

REPORT INFORMATION
  Report Type: 
  Country: None (occurrence: None)
  Receive Date: 20111007
  Receipt Date: 20110930
  Transmission Date: 20120403
  Serious: Yes (Hospitalization, Other)
  Sender: FDA-Public Use
  Company Number: PHEH2009US03937

PATIENT
  Sex: Female

DRUGS (20)
  1. INSULIN [Concomitant]
  2. ZYRTEC [Concomitant]
  3. LEVEMIR [Concomitant]
  4. LORTAB [Concomitant]
  5. RESTORIL [Concomitant]
  6. MEGESTROL ACETATE [Concomitant]
  7. FASLODEX [Concomitant]
  8. ZANTAC [Concomitant]
  9. CIPROFLOXACIN [Concomitant]
  10. MELOXICAM [Concomitant]
  11. ACCUPRIL [Concomitant]
  12. NOVOLOG [Concomitant]
  13. MUCINEX [Concomitant]
  14. CHLORZOXAZONE [Concomitant]
  15. CARDIZEM [Concomitant]
  16. ZOMETA [Suspect]
     Indication: METASTATIC NEOPLASM
  17. FOSAMAX [Suspect]
  18. LEXAPRO [Concomitant]
  19. FLUCONAZOLE [Concomitant]
  20. METFORMIN HYDROCHLORIDE [Concomitant]

REACTIONS (37)
  - BRONCHITIS [None]
  - NEPHROLITHIASIS [None]
  - BONE LESION [None]
  - SCARLET FEVER [None]
  - URTICARIA [None]
  - SKIN DISORDER [None]
  - HYPERTENSION [None]
  - PNEUMONIA [None]
  - ASTHMA [None]
  - CHRONIC SINUSITIS [None]
  - HYPOKALAEMIA [None]
  - BACK PAIN [None]
  - GOITRE [None]
  - OSTEOPENIA [None]
  - OSTEOPOROSIS [None]
  - VITAMIN D DECREASED [None]
  - OEDEMA [None]
  - INJURY [None]
  - PAIN [None]
  - DIABETES MELLITUS [None]
  - ARTHRITIS [None]
  - KIDNEY INFECTION [None]
  - OSTEONECROSIS OF JAW [None]
  - RUBELLA [None]
  - CHOLELITHIASIS [None]
  - HAEMORRHOIDS [None]
  - ANHEDONIA [None]
  - OSTEITIS [None]
  - RECTAL POLYP [None]
  - ANXIETY [None]
  - CARDIAC MURMUR [None]
  - MUMPS [None]
  - DISABILITY [None]
  - METASTASES TO BONE [None]
  - SEASONAL ALLERGY [None]
  - CONSTIPATION [None]
  - GASTROOESOPHAGEAL REFLUX DISEASE [None]
